FAERS Safety Report 18931448 (Version 1)
Quarter: 2021Q1

REPORT INFORMATION
  Report Type: Other
  Country: US (occurrence: US)
  Receive Date: 20210223
  Receipt Date: 20210223
  Transmission Date: 20210420
  Serious: Yes (Other)
  Sender: FDA-Public Use
  Company Number: US-B.BRAUN MEDICAL INC.-2107218

PATIENT
  Age: 34 Year
  Sex: Female

DRUGS (7)
  1. CYCLOBENZAPRINE. [Concomitant]
     Active Substance: CYCLOBENZAPRINE
  2. CITALOPRAM [Concomitant]
     Active Substance: CITALOPRAM HYDROBROMIDE
  3. EXTENDED RELEASE OXYCODONE [Concomitant]
  4. PREGABALIN. [Concomitant]
     Active Substance: PREGABALIN
  5. LIDOCAINE HYDROCHLORIDE AND DEXTROSE [Suspect]
     Active Substance: DEXTROSE\LIDOCAINE HYDROCHLORIDE
     Indication: PAIN
     Route: 042
  6. IMMEDIATE RELEASE OXYCODONE [Concomitant]
  7. GABAPENTIN. [Concomitant]
     Active Substance: GABAPENTIN

REACTIONS (1)
  - Headache [None]
